FAERS Safety Report 23838035 (Version 2)
Quarter: 2024Q2

REPORT INFORMATION
  Report Type: Spontaneous
  Country: CA (occurrence: CA)
  Receive Date: 20240509
  Receipt Date: 20240516
  Transmission Date: 20240716
  Serious: Yes (Other)
  Sender: FDA-Public Use
  Company Number: CA-SANDOZ-SDZ2024CA047051

PATIENT
  Age: 63 Year
  Sex: Male

DRUGS (1)
  1. ETANERCEPT [Suspect]
     Active Substance: ETANERCEPT
     Indication: Psoriatic arthropathy
     Dosage: UNK, 1 EVERY 1 WEEKS
     Route: 065

REACTIONS (4)
  - Asthma [Unknown]
  - Exposure to unspecified agent [Unknown]
  - Illness [Unknown]
  - Immunosuppression [Unknown]
